FAERS Safety Report 9665869 (Version 1)
Quarter: 2013Q4

REPORT INFORMATION
  Report Type: Spontaneous
  Country: US (occurrence: None)
  Receive Date: 20131031
  Receipt Date: 20131031
  Transmission Date: 20140711
  Serious: Yes (Hospitalization, Other)
  Sender: FDA-Public Use
  Company Number: None

PATIENT
  Age: 32 Year
  Sex: Female
  Weight: 77.11 kg

DRUGS (13)
  1. LEVOCETIRIZINE [Suspect]
     Indication: HYPERSENSITIVITY
     Dosage: 2.5 MG 5 ML SOL.; 2 TEASPOONS
     Route: 048
     Dates: start: 20131017
  2. XENAZINE [Concomitant]
  3. FLUTICASONE [Concomitant]
  4. FLOVENT [Concomitant]
  5. PREVACID [Concomitant]
  6. LEVOCETRIZINE [Concomitant]
  7. PEPCID COMPLETE [Concomitant]
  8. XOEPENIX [Concomitant]
  9. ZOFRAN [Concomitant]
  10. MULTIVITAMINS [Concomitant]
  11. MOTRIN [Concomitant]
  12. TUMS [Concomitant]
  13. FLUCONAZOLE [Concomitant]

REACTIONS (9)
  - Dry throat [None]
  - Dyspnoea [None]
  - Dizziness [None]
  - Confusional state [None]
  - Eye irritation [None]
  - Vision blurred [None]
  - Dyspepsia [None]
  - Product taste abnormal [None]
  - Product quality issue [None]
